FAERS Safety Report 10940886 (Version 2)
Quarter: 2015Q2

REPORT INFORMATION
  Report Type: Spontaneous
  Country: US (occurrence: US)
  Receive Date: 20150322
  Receipt Date: 20150524
  Transmission Date: 20150821
  Serious: No
  Sender: FDA-Public Use
  Company Number: US-JNJFOC-20140607209

PATIENT
  Age: 53 Year
  Sex: Male

DRUGS (3)
  1. INVOKANA [Suspect]
     Active Substance: CANAGLIFLOZIN
     Indication: TYPE 2 DIABETES MELLITUS
     Route: 048
  2. ACE-INHIBITOR [Concomitant]
     Active Substance: UNSPECIFIED INGREDIENT
  3. CHOLESTEROL LOWERING AGENT [Concomitant]
     Indication: BLOOD CHOLESTEROL

REACTIONS (1)
  - Urinary tract infection [Recovered/Resolved]
